FAERS Safety Report 11692682 (Version 3)
Quarter: 2015Q4

REPORT INFORMATION
  Report Type: Report from Study
  Country: JP (occurrence: JP)
  Receive Date: 20151103
  Receipt Date: 20151218
  Transmission Date: 20160304
  Serious: Yes (Death, Hospitalization, Other)
  Sender: FDA-Public Use
  Company Number: JP-B.I. PHARMACEUTICALS,INC./RIDGEFIELD-2015-BI-29326NB

PATIENT
  Age: 77 Year
  Sex: Female
  Weight: 50.9 kg

DRUGS (8)
  1. OLMETEC [Concomitant]
     Active Substance: OLMESARTAN MEDOXOMIL
     Indication: PRODUCT USED FOR UNKNOWN INDICATION
     Dosage: 20 MG
     Route: 048
     Dates: end: 20150913
  2. GILOTRIF [Suspect]
     Active Substance: AFATINIB
     Dosage: 30 MG
     Route: 065
     Dates: start: 20150821, end: 20150913
  3. MINOMYCIN [Concomitant]
     Active Substance: MINOCYCLINE HYDROCHLORIDE
     Indication: PROPHYLAXIS
     Dosage: 100 MG
     Route: 048
     Dates: start: 20150821, end: 20150913
  4. GILOTRIF [Suspect]
     Active Substance: AFATINIB
     Indication: LUNG ADENOCARCINOMA
     Dosage: 40 MG
     Route: 065
     Dates: start: 20150406, end: 20150416
  5. TSUMURA HANGESHASHINTO [Suspect]
     Active Substance: HERBALS
     Indication: PROPHYLAXIS
  6. NORVASC [Concomitant]
     Active Substance: AMLODIPINE BESYLATE
     Indication: PRODUCT USED FOR UNKNOWN INDICATION
     Dosage: 5 MG
     Route: 048
     Dates: end: 20150913
  7. LIPITOR [Concomitant]
     Active Substance: ATORVASTATIN CALCIUM
     Indication: PRODUCT USED FOR UNKNOWN INDICATION
     Dosage: 10 MG
     Route: 048
     Dates: end: 20150913
  8. TSUMURA HANGESHASHINTO [Suspect]
     Active Substance: HERBALS
     Indication: PROPHYLAXIS AGAINST DIARRHOEA
     Dosage: 7.5 G
     Route: 048
     Dates: end: 20150913

REACTIONS (9)
  - Respiratory arrest [None]
  - Lung adenocarcinoma [None]
  - Hypertension [Recovered/Resolved]
  - Pneumonia aspiration [Fatal]
  - Intestinal obstruction [Not Recovered/Not Resolved]
  - Diarrhoea [Recovered/Resolved]
  - Rash [Not Recovered/Not Resolved]
  - Loss of consciousness [None]
  - Malignant neoplasm progression [Not Recovered/Not Resolved]

NARRATIVE: CASE EVENT DATE: 20150409
